FAERS Safety Report 4846860-1 (Version None)
Quarter: 2005Q4

REPORT INFORMATION
  Report Type: 
  Country: None (occurrence: None)
  Receive Date: 20051207
  Receipt Date: 20050721
  Transmission Date: 20060501
  Serious: Yes (Hospitalization)
  Sender: FDA-Public Use
  Company Number: JP-BOEHRINGER INGELHEIM PHARMACEUTICALS, INC.-2005-BP-12757NB

PATIENT
  Sex: Male
  Weight: 70.6 kg

DRUGS (18)
  1. MICARDIS [Suspect]
     Indication: HYPERTENSION
     Route: 048
     Dates: start: 20050523, end: 20050526
  2. METLIGINE [Suspect]
     Indication: PROCEDURAL HYPOTENSION
     Route: 048
     Dates: end: 20050606
  3. PANALDINE [Suspect]
     Route: 048
     Dates: start: 20050413, end: 20050708
  4. ASPIRIN [Suspect]
     Route: 048
     Dates: start: 20050413, end: 20050708
  5. PERSANTIN-L [Concomitant]
     Route: 048
     Dates: end: 20050715
  6. KINEDAK [Concomitant]
     Route: 048
     Dates: end: 20050715
  7. AMLODIPINE BESYLATE [Concomitant]
     Route: 048
  8. ALLOTOP [Concomitant]
     Route: 048
  9. COMESGEN [Concomitant]
     Route: 048
  10. PROMEDES (FUROSEMIDE) [Concomitant]
     Route: 048
  11. DICHLOTRIDE [Concomitant]
     Route: 048
     Dates: end: 20050715
  12. ISOSORBIDE MONONITRATE [Concomitant]
     Route: 048
     Dates: end: 20050715
  13. ALLOPURINOL [Concomitant]
     Route: 048
     Dates: end: 20050715
  14. LENDORMIN [Concomitant]
     Route: 048
  15. PURSENNID (SENNOSIDE) [Concomitant]
     Route: 048
  16. CYANOCOBALAMIN [Concomitant]
     Route: 048
     Dates: end: 20050715
  17. LASIX [Concomitant]
     Route: 048
     Dates: end: 20050715
  18. URSO [Concomitant]
     Route: 048
     Dates: end: 20050715

REACTIONS (2)
  - JAUNDICE [None]
  - LYMPHOCYTE STIMULATION TEST POSITIVE [None]
